FAERS Safety Report 5839867-9 (Version None)
Quarter: 2008Q3

REPORT INFORMATION
  Report Type: 
  Country: None (occurrence: None)
  Receive Date: 20080811
  Receipt Date: 20080731
  Transmission Date: 20090109
  Serious: Yes (Hospitalization, Other)
  Sender: FDA-Public Use
  Company Number: HU-AMGEN-UK295799

PATIENT
  Sex: Female
  Weight: 80 kg

DRUGS (10)
  1. ARANESP [Suspect]
     Indication: RENAL FAILURE CHRONIC
     Route: 058
     Dates: start: 20070309, end: 20080630
  2. FUROSEMIDE [Concomitant]
     Route: 048
     Dates: start: 20070302
  3. ENALAPRIL MALEATE [Concomitant]
     Route: 048
     Dates: start: 20070302
  4. AMLODIPINE [Concomitant]
     Route: 048
     Dates: start: 20070302
  5. CLOPAMIDE [Concomitant]
     Route: 048
     Dates: start: 20070302
  6. PRAZOSIN HCL [Concomitant]
     Route: 048
     Dates: start: 20070302
  7. ASPIRIN [Concomitant]
     Route: 048
     Dates: start: 20070302
  8. CALCIUM CARBONATE [Concomitant]
     Route: 048
     Dates: start: 20070302
  9. CALCIUM DOBESILATE [Concomitant]
     Route: 048
     Dates: start: 20070302
  10. INSULIN [Concomitant]
     Route: 058
     Dates: start: 20070302

REACTIONS (2)
  - ANAEMIA [None]
  - DRUG INEFFECTIVE [None]
